FAERS Safety Report 18309738 (Version 1)
Quarter: 2020Q3

REPORT INFORMATION
  Report Type: Spontaneous
  Country: JP (occurrence: JP)
  Receive Date: 20200925
  Receipt Date: 20200925
  Transmission Date: 20201103
  Serious: Yes (Other)
  Sender: FDA-Public Use
  Company Number: JP-LUPIN PHARMACEUTICALS INC.-2020-06354

PATIENT
  Age: 8 Decade
  Sex: Female

DRUGS (6)
  1. SULFAMETHOXAZOLE AND TRIMETHOPRIM [Suspect]
     Active Substance: SULFAMETHOXAZOLE\TRIMETHOPRIM
     Dosage: UNK (160MG TRIMETHOPRIM AND 800MG SULFAMETHOXAZOLE)
     Route: 048
     Dates: start: 201704, end: 201704
  2. SULFAMETHOXAZOLE AND TRIMETHOPRIM [Suspect]
     Active Substance: SULFAMETHOXAZOLE\TRIMETHOPRIM
     Dosage: UNK (160MG TRIMETHOPRIM AND 800MG SULFAMETHOXAZOLE)
     Route: 048
     Dates: start: 201812, end: 201812
  3. SULFAMETHOXAZOLE AND TRIMETHOPRIM [Suspect]
     Active Substance: SULFAMETHOXAZOLE\TRIMETHOPRIM
     Indication: CYSTITIS
     Dosage: UNK (160MG TRIMETHOPRIM AND 800MG SULFAMETHOXAZOLE)
     Route: 048
     Dates: start: 201703, end: 201703
  4. SULFAMETHOXAZOLE AND TRIMETHOPRIM [Suspect]
     Active Substance: SULFAMETHOXAZOLE\TRIMETHOPRIM
     Dosage: UNK (160MG TRIMETHOPRIM AND 800MG SULFAMETHOXAZOLE)
     Route: 048
     Dates: start: 201802, end: 201802
  5. SULFAMETHOXAZOLE AND TRIMETHOPRIM [Suspect]
     Active Substance: SULFAMETHOXAZOLE\TRIMETHOPRIM
     Dosage: UNK (160MG TRIMETHOPRIM AND 800MG SULFAMETHOXAZOLE)
     Route: 048
     Dates: start: 201801, end: 201801
  6. SULFAMETHOXAZOLE AND TRIMETHOPRIM [Suspect]
     Active Substance: SULFAMETHOXAZOLE\TRIMETHOPRIM
     Dosage: UNK (160MG TRIMETHOPRIM AND 800MG SULFAMETHOXAZOLE)
     Route: 048
     Dates: start: 201810, end: 201810

REACTIONS (1)
  - Drug resistance [Unknown]
